FAERS Safety Report 6892728-9 (Version None)
Quarter: 2010Q3

REPORT INFORMATION
  Report Type: 
  Country: None (occurrence: None)
  Receive Date: 20100731
  Receipt Date: 20080829
  Transmission Date: 20110219
  Serious: No
  Sender: FDA-Public Use
  Company Number: US-PFIZER INC-2008073031

PATIENT
  Sex: Female

DRUGS (3)
  1. FLAGYL [Suspect]
     Indication: BACTERIAL INFECTION
     Dates: start: 20080826
  2. NEXIUM [Concomitant]
  3. LIPITOR [Concomitant]

REACTIONS (2)
  - NERVOUSNESS [None]
  - PERSONALITY DISORDER [None]
